FAERS Safety Report 14367407 (Version 1)
Quarter: 2018Q1

REPORT INFORMATION
  Report Type: Spontaneous
  Country: US (occurrence: US)
  Receive Date: 20180109
  Receipt Date: 20180109
  Transmission Date: 20180509
  Serious: No
  Sender: FDA-Public Use
  Company Number: US-TARO-2017TAR00994

PATIENT
  Sex: Male
  Weight: 95.24 kg

DRUGS (5)
  1. DOXYCYCLINE. [Concomitant]
     Active Substance: DOXYCYCLINE
     Dosage: 50 MG, UNK
  2. LIPITOR [Concomitant]
     Active Substance: ATORVASTATIN CALCIUM
  3. BUPROPION. [Concomitant]
     Active Substance: BUPROPION
     Dosage: 100 MG, 1X/DAY
  4. METRONIDAZOLE GEL USP, 1% [Suspect]
     Active Substance: METRONIDAZOLE
     Indication: ROSACEA
     Dosage: ^SMALL AMOUNT^, 1X/DAY
     Route: 061
     Dates: start: 2016, end: 201711
  5. METRONIDAZOLE GEL USP, 1% [Suspect]
     Active Substance: METRONIDAZOLE
     Dosage: ^SMALL AMOUNT^, 1X/DAY
     Route: 061
     Dates: start: 2016, end: 201711

REACTIONS (2)
  - Product quality issue [Recovered/Resolved]
  - Malabsorption from application site [Recovered/Resolved]
